FAERS Safety Report 9236708 (Version 3)
Quarter: 2013Q2

REPORT INFORMATION
  Report Type: Spontaneous
  Country: DE (occurrence: DE)
  Receive Date: 20130417
  Receipt Date: 20130610
  Transmission Date: 20140414
  Serious: Yes (Hospitalization)
  Sender: FDA-Public Use
  Company Number: DE-TEVA-386311GER

PATIENT
  Age: 74 Year
  Sex: Male

DRUGS (3)
  1. PANTOPRAZOL ABZ 40MG [Suspect]
     Indication: ERUCTATION
     Route: 048
     Dates: start: 201301
  2. PANTOPRAZOL ABZ 40MG [Suspect]
     Indication: ABDOMINAL PAIN UPPER
     Route: 048
     Dates: start: 20130216, end: 20130216
  3. NEXIUM [Suspect]
     Dates: start: 201302

REACTIONS (5)
  - Biliary colic [Unknown]
  - Back pain [Recovered/Resolved]
  - Abdominal pain [Recovered/Resolved]
  - Chest pain [Recovered/Resolved]
  - Pain of skin [Recovered/Resolved]
